FAERS Safety Report 10597403 (Version 3)
Quarter: 2015Q1

REPORT INFORMATION
  Report Type: Report from Study
  Country: US (occurrence: US)
  Receive Date: 20141121
  Receipt Date: 20150129
  Transmission Date: 20150720
  Serious: Yes (Hospitalization)
  Sender: FDA-Public Use
  Company Number: PHEH2014US022891

PATIENT
  Sex: Male
  Weight: 64.1 kg

DRUGS (1)
  1. EXJADE [Suspect]
     Active Substance: DEFERASIROX
     Indication: SICKLE CELL ANAEMIA
     Dosage: 2000 MG, QD (500 X 4 TABLETS, ONCE DAILY)
     Route: 048
     Dates: start: 201309

REACTIONS (2)
  - Pneumonia [Unknown]
  - Sickle cell anaemia with crisis [Unknown]
